FAERS Safety Report 13777742 (Version 1)
Quarter: 2017Q3

REPORT INFORMATION
  Report Type: Spontaneous
  Country: SE (occurrence: SE)
  Receive Date: 20170721
  Receipt Date: 20170721
  Transmission Date: 20171127
  Serious: Yes (Hospitalization, Other)
  Sender: FDA-Public Use
  Company Number: SE-ASTRAZENECA-2017SE47826

PATIENT
  Age: 74 Year
  Sex: Male

DRUGS (5)
  1. NEXIUM [Suspect]
     Active Substance: ESOMEPRAZOLE MAGNESIUM
     Indication: GASTRIC ULCER
     Dosage: 40.0MG UNKNOWN
     Route: 048
     Dates: start: 20150903, end: 20170214
  2. NEXIUM [Suspect]
     Active Substance: ESOMEPRAZOLE MAGNESIUM
     Indication: GASTRIC ULCER
     Dosage: 20.0MG UNKNOWN
     Route: 048
     Dates: end: 20150903
  3. TROMBYL [Concomitant]
     Active Substance: ASPIRIN
  4. NEXIUM [Suspect]
     Active Substance: ESOMEPRAZOLE MAGNESIUM
     Indication: GASTRIC ULCER
     Dosage: ESOMEPRAZOLE 20 MG, UNKNOWN UNKNOWN
     Route: 048
  5. BRILIQUE [Concomitant]
     Active Substance: TICAGRELOR

REACTIONS (4)
  - Acute myocardial infarction [Unknown]
  - Angina pectoris [Unknown]
  - Tinnitus [Not Recovered/Not Resolved]
  - Headache [Not Recovered/Not Resolved]
